FAERS Safety Report 10051697 (Version 1)
Quarter: 2014Q2

REPORT INFORMATION
  Report Type: Spontaneous
  Country: US (occurrence: US)
  Receive Date: 20140401
  Receipt Date: 20140401
  Transmission Date: 20141212
  Serious: No
  Sender: FDA-Public Use
  Company Number: US-009507513-1403USA011558

PATIENT
  Sex: Male

DRUGS (1)
  1. ZOCOR [Suspect]
     Dosage: UNK
     Route: 048
     Dates: start: 201209

REACTIONS (2)
  - Joint swelling [Unknown]
  - Secretion discharge [Unknown]
